FAERS Safety Report 8095094-9 (Version None)
Quarter: 2012Q1

REPORT INFORMATION
  Report Type: 
  Country: None (occurrence: None)
  Receive Date: 20120131
  Receipt Date: 20120124
  Transmission Date: 20120608
  Serious: Yes (Other)
  Sender: FDA-Public Use
  Company Number: US-SANOFI-AVENTIS-2012SA005325

PATIENT
  Age: 42 Year
  Sex: Female

DRUGS (3)
  1. CORTISONE ACETATE [Concomitant]
  2. PLAQUENIL [Suspect]
  3. HUMIRA [Concomitant]
     Route: 058
     Dates: start: 20101218, end: 20111209

REACTIONS (1)
  - PANCREATITIS [None]
